FAERS Safety Report 8927960 (Version 1)
Quarter: 2012Q4

REPORT INFORMATION
  Report Type: Spontaneous
  Country: US (occurrence: None)
  Receive Date: 20121119
  Receipt Date: 20121119
  Transmission Date: 20130627
  Serious: Yes (Other)
  Sender: FDA-Public Use
  Company Number: DKLU1085297

PATIENT
  Age: 58 Year
  Sex: Male
  Weight: 100.9 kg

DRUGS (6)
  1. ONFI (CLOBAZAM) (CLOBAZAM) (10 MG, TABLET) [Suspect]
     Dosage: 10 mg milligram (s), HS
     Route: 048
     Dates: start: 20110801, end: 20121011
  2. ONFI (CLOBAZAM) (CLOBAZAM) (10 MG, TABLET) [Suspect]
     Dosage: 10 mg milligram(s), 1 in 1 d, oral
     Route: 048
     Dates: start: 201207, end: 20121011
  3. DEPAKOTE ER [Concomitant]
  4. TOPAMAX [Concomitant]
  5. LAMICTAL [Concomitant]
  6. CALCIUM/VITAMIN D [Concomitant]

REACTIONS (2)
  - Grand mal convulsion [None]
  - Convulsion [None]
